FAERS Safety Report 5385037-0 (Version None)
Quarter: 2007Q3

REPORT INFORMATION
  Report Type: 
  Country: None (occurrence: None)
  Receive Date: 20070712
  Receipt Date: 20070709
  Transmission Date: 20080115
  Serious: Yes (Death, Hospitalization, Other)
  Sender: FDA-Public Use
  Company Number: PHEH2005US10675

PATIENT
  Age: 52 Year
  Sex: Female
  Weight: 80.725 kg

DRUGS (26)
  1. DECADRON #1 [Concomitant]
     Dosage: 10 MG, UNK
  2. ARANESP [Concomitant]
     Dosage: 300 MG Q3WK
     Route: 058
     Dates: start: 20030821
  3. XELODA [Concomitant]
     Indication: METASTASES TO BONE
     Dosage: 2000 MG, BID
     Route: 048
     Dates: start: 20011001
  4. XELODA [Concomitant]
     Dosage: 3 TABS
  5. MITOXANTRONE [Concomitant]
  6. COUMADIN [Concomitant]
     Dosage: 7.5 MG, UNK
  7. ADALAT [Concomitant]
  8. DIOVAN [Concomitant]
  9. ZOLOFT [Concomitant]
  10. LOPERAMIDE HCL [Concomitant]
  11. CELEBREX [Concomitant]
  12. INSULIN [Concomitant]
     Indication: BLOOD GLUCOSE INCREASED
  13. RITALIN [Concomitant]
     Indication: FATIGUE
  14. LEUCOVORIN CALCIUM [Concomitant]
  15. GEMZAR [Concomitant]
  16. FLUOROURACIL [Concomitant]
  17. HORMONES [Concomitant]
  18. ZOMETA [Suspect]
     Indication: METASTASES TO BONE
     Dosage: MONTHLY
     Route: 042
     Dates: start: 20011001
  19. ROCEPHIN [Concomitant]
     Indication: INFECTION
     Dates: start: 20020605
  20. NAVELBINE [Concomitant]
  21. COREG [Concomitant]
  22. HYDROCHLOROTHIAZIDE [Concomitant]
  23. ALLEGRA [Concomitant]
  24. NIFEDIPINE [Concomitant]
  25. AROMASIN [Concomitant]
     Indication: BREAST CANCER
     Dosage: 25 MG, QD
  26. BUSPAR [Concomitant]
     Indication: ANXIETY

REACTIONS (41)
  - ANAEMIA [None]
  - ANGIOPATHY [None]
  - ASPIRATION PLEURAL CAVITY [None]
  - ATELECTASIS [None]
  - BONE DISORDER [None]
  - BONE SCAN ABNORMAL [None]
  - CARDIOMYOPATHY [None]
  - DEATH [None]
  - DEEP VEIN THROMBOSIS [None]
  - DIABETIC FOOT INFECTION [None]
  - DISORIENTATION [None]
  - DYSPNOEA [None]
  - FATIGUE [None]
  - GINGIVAL PAIN [None]
  - GINGIVAL SWELLING [None]
  - HIP SURGERY [None]
  - IMPAIRED HEALING [None]
  - INFECTION [None]
  - INFLAMMATION [None]
  - JAW OPERATION [None]
  - LOOSE TOOTH [None]
  - MALIGNANT NEOPLASM PROGRESSION [None]
  - OEDEMA PERIPHERAL [None]
  - ORAL CANDIDIASIS [None]
  - ORAL FUNGAL INFECTION [None]
  - OSTEOLYSIS [None]
  - OSTEONECROSIS [None]
  - PAIN [None]
  - PALMAR-PLANTAR ERYTHRODYSAESTHESIA SYNDROME [None]
  - PATHOLOGICAL FRACTURE [None]
  - PERICARDIAL EFFUSION [None]
  - PHLEBITIS [None]
  - PLEURAL EFFUSION [None]
  - PURULENCE [None]
  - RESPIRATORY DISTRESS [None]
  - SWELLING [None]
  - TOOTH ABSCESS [None]
  - TOOTH EXTRACTION [None]
  - TOOTH INFECTION [None]
  - WOUND DEBRIDEMENT [None]
  - WOUND DRAINAGE [None]
